FAERS Safety Report 8840249 (Version 9)
Quarter: 2014Q1

REPORT INFORMATION
  Report Type: Spontaneous
  Country: JP (occurrence: JP)
  Receive Date: 20121015
  Receipt Date: 20140128
  Transmission Date: 20141002
  Serious: Yes (Disabling)
  Sender: FDA-Public Use
  Company Number: JP-GLAXOSMITHKLINE-B0819535A

PATIENT
  Sex: Male

DRUGS (8)
  1. HEPSERA 10 [Suspect]
     Indication: CHRONIC HEPATITIS B
     Dosage: 10MG PER DAY
     Route: 048
     Dates: start: 200401, end: 20120809
  2. HEPSERA 10 [Suspect]
     Indication: CHRONIC HEPATITIS B
     Dosage: 10MG ALTERNATE DAYS
     Route: 048
     Dates: start: 20120810
  3. ZEFIX 100 [Suspect]
     Indication: CHRONIC HEPATITIS B
     Dosage: 100MG PER DAY
     Route: 048
     Dates: end: 20120809
  4. ZEFIX 100 [Suspect]
     Indication: CHRONIC HEPATITIS B
     Dosage: 100MG ALTERNATE DAYS
     Route: 048
     Dates: start: 20120810
  5. BLOPRESS [Concomitant]
     Indication: HYPERTENSION
     Dosage: 4MG PER DAY
     Route: 048
  6. THYRONAMIN [Concomitant]
     Indication: HYPERTENSION
     Dosage: 7.5MCG PER DAY
     Route: 048
  7. LOXOPROFEN [Concomitant]
     Indication: BACK PAIN
     Dosage: 60MG THREE TIMES PER DAY
     Route: 048
  8. TAKEPRON [Concomitant]
     Indication: PROPHYLAXIS
     Dosage: 15MG PER DAY
     Route: 048

REACTIONS (22)
  - Osteomalacia [Recovering/Resolving]
  - Fanconi syndrome [Recovering/Resolving]
  - Renal tubular disorder [Unknown]
  - Glomerular vascular disorder [Unknown]
  - Blood creatinine increased [Unknown]
  - Blood alkaline phosphatase increased [Unknown]
  - Hypocalcaemia [Unknown]
  - Hypophosphataemia [Recovered/Resolved]
  - Back pain [Unknown]
  - Renal disorder [Unknown]
  - Osteoporosis [Unknown]
  - Pain [Recovered/Resolved]
  - Hypouricaemia [Recovered/Resolved]
  - Glucose urine present [Recovered/Resolved]
  - Proteinuria [Recovered/Resolved]
  - Amino acid level increased [Recovered/Resolved]
  - Joint ankylosis [Unknown]
  - Arthralgia [Unknown]
  - Arthralgia [Unknown]
  - Bone pain [Unknown]
  - Gait disturbance [Unknown]
  - Mobility decreased [Unknown]
